FAERS Safety Report 25931718 (Version 3)
Quarter: 2025Q4

REPORT INFORMATION
  Report Type: Report from Study
  Country: None (occurrence: RU)
  Receive Date: 20251016
  Receipt Date: 20251118
  Transmission Date: 20260117
  Serious: Yes (Death, Hospitalization)
  Sender: SAREPTA THERAPEUTICS
  Company Number: RU-SAREPTA THERAPEUTICS INC.-SRP2025-006512

PATIENT
  Age: 14 Year
  Weight: 50 kg

DRUGS (3)
  1. ETEPLIRSEN [Suspect]
     Active Substance: ETEPLIRSEN
     Indication: Duchenne muscular dystrophy
     Dosage: 1800 MILLIGRAM/36 ML, WEEKLY
  2. ETEPLIRSEN [Suspect]
     Active Substance: ETEPLIRSEN
     Dosage: 1500 MILLIGRAM/30 ML, WEEKLY
  3. PREDNISOLONE [Concomitant]
     Active Substance: PREDNISOLONE
     Indication: Product used for unknown indication
     Dosage: 5 MILLIGRAM

REACTIONS (4)
  - Pneumonia [Fatal]
  - Respiratory failure [Fatal]
  - Coma [Fatal]
  - Cardiac failure acute [Fatal]
